FAERS Safety Report 17651910 (Version 1)
Quarter: 2020Q2

REPORT INFORMATION
  Report Type: Spontaneous
  Country: US (occurrence: US)
  Receive Date: 20200409
  Receipt Date: 20200409
  Transmission Date: 20200713
  Serious: No
  Sender: FDA-Public Use
  Company Number: US-ALKERMES INC.-ALK-2019-005361

PATIENT
  Age: 44 Year
  Sex: Female

DRUGS (1)
  1. VIVITROL [Suspect]
     Active Substance: NALTREXONE
     Indication: ALCOHOLISM
     Dosage: 380 MG, QMO
     Route: 030

REACTIONS (6)
  - Needle issue [Not Recovered/Not Resolved]
  - Pain [Recovering/Resolving]
  - Musculoskeletal discomfort [Recovering/Resolving]
  - Injection site bruising [Recovering/Resolving]
  - Incorrect dose administered [Not Recovered/Not Resolved]
  - Injection site reaction [Recovering/Resolving]
